FAERS Safety Report 16010313 (Version 1)
Quarter: 2019Q1

REPORT INFORMATION
  Report Type: Spontaneous
  Country: US (occurrence: US)
  Receive Date: 20190227
  Receipt Date: 20190227
  Transmission Date: 20190418
  Serious: Yes (Hospitalization)
  Sender: FDA-Public Use
  Company Number: US-JNJFOC-20190224100

PATIENT
  Age: 12 Year
  Sex: Female

DRUGS (5)
  1. MOTRIN IB [Suspect]
     Active Substance: IBUPROFEN
     Route: 048
  2. MOTRIN IB [Suspect]
     Active Substance: IBUPROFEN
     Indication: PYREXIA
     Dosage: START DATE: ON OR ABOUT 15-JUN-2012
     Route: 048
     Dates: start: 201206
  3. IBUPROFEN. [Suspect]
     Active Substance: IBUPROFEN
     Indication: PYREXIA
     Dosage: START DATE: ON OR ABOUT 15-JUN-2012
     Route: 048
     Dates: start: 201206
  4. PENICILLINE [Suspect]
     Active Substance: PENICILLIN
     Indication: PRODUCT USED FOR UNKNOWN INDICATION
     Dosage: START DATE: ON OR ABOUT 19-JUN-2012
     Route: 048
     Dates: start: 201206
  5. AMPICILLIN [Suspect]
     Active Substance: AMPICILLIN
     Indication: PRODUCT USED FOR UNKNOWN INDICATION
     Dosage: START DATE: ON OR ABOUT 19-JUN-2012
     Route: 048
     Dates: start: 201206

REACTIONS (2)
  - Stevens-Johnson syndrome [Not Recovered/Not Resolved]
  - Toxic epidermal necrolysis [Not Recovered/Not Resolved]

NARRATIVE: CASE EVENT DATE: 201206
